FAERS Safety Report 10022215 (Version 40)
Quarter: 2019Q1

REPORT INFORMATION
  Report Type: Report from Study
  Country: CA (occurrence: CA)
  Receive Date: 20140319
  Receipt Date: 20190321
  Transmission Date: 20190417
  Serious: Yes (Hospitalization, Other)
  Sender: FDA-Public Use
  Company Number: PHHY2011CA101736

PATIENT
  Age: 72 Year
  Sex: Female

DRUGS (16)
  1. OCTREOTIDE. [Suspect]
     Active Substance: OCTREOTIDE
     Indication: PRODUCT USED FOR UNKNOWN INDICATION
     Route: 058
  2. LUTETIUM (LU 177) [Suspect]
     Active Substance: LUTETIUM LU-177
     Indication: PRODUCT USED FOR UNKNOWN INDICATION
     Dosage: UNK
     Route: 065
  3. SANDOSTATIN LAR DEPOT [Suspect]
     Active Substance: OCTREOTIDE ACETATE
     Dosage: 30 MG, QMO ( EVERY 4 WEEKS/ EVERY 28 DAYS)
     Route: 030
  4. HEPARIN [Suspect]
     Active Substance: HEPARIN SODIUM
     Indication: PRODUCT USED FOR UNKNOWN INDICATION
     Route: 065
  5. VITAMIN D [Concomitant]
     Active Substance: CHOLECALCIFEROL
     Indication: PRODUCT USED FOR UNKNOWN INDICATION
     Route: 065
  6. PERCOCET [Concomitant]
     Active Substance: ACETAMINOPHEN\OXYCODONE HYDROCHLORIDE
     Indication: PRODUCT USED FOR UNKNOWN INDICATION
     Route: 065
  7. SANDOSTATIN LAR DEPOT [Suspect]
     Active Substance: OCTREOTIDE ACETATE
     Dosage: 20 MG, QMO (EVERY 4 WEEKS)
     Route: 030
  8. SANDOSTATIN LAR DEPOT [Suspect]
     Active Substance: OCTREOTIDE ACETATE
     Dosage: 30 MG, QMO ( EVERY 4 WEEKS/ EVERY 28 DAYS)
     Route: 030
  9. MORPHINE [Concomitant]
     Active Substance: MORPHINE
     Indication: PRODUCT USED FOR UNKNOWN INDICATION
     Route: 065
  10. SANDOSTATIN LAR DEPOT [Suspect]
     Active Substance: OCTREOTIDE ACETATE
     Indication: METASTATIC CARCINOID TUMOUR
     Dosage: 20 MG, QMO (EVERY 4 WEEKS)
     Route: 030
     Dates: start: 20110421
  11. SANDOSTATIN LAR DEPOT [Suspect]
     Active Substance: OCTREOTIDE ACETATE
     Dosage: 30 MG, QMO ( EVERY 4 WEEKS/ EVERY 28 DAYS)
     Route: 030
  12. GLUCOSAMINE [Concomitant]
     Active Substance: GLUCOSAMINE
     Indication: PRODUCT USED FOR UNKNOWN INDICATION
     Route: 065
  13. GRAVOL [Concomitant]
     Active Substance: DIMENHYDRINATE
     Indication: PRODUCT USED FOR UNKNOWN INDICATION
     Route: 065
  14. VALTREX [Concomitant]
     Active Substance: VALACYCLOVIR HYDROCHLORIDE
     Indication: PRODUCT USED FOR UNKNOWN INDICATION
     Dosage: 500 MG, TID (FOR 7 DAYS)
     Route: 065
     Dates: start: 20171219
  15. CALCIUM [Concomitant]
     Active Substance: CALCIUM
     Indication: PRODUCT USED FOR UNKNOWN INDICATION
     Route: 065
  16. METOCLOPRAMIDE. [Concomitant]
     Active Substance: METOCLOPRAMIDE
     Indication: PRODUCT USED FOR UNKNOWN INDICATION
     Route: 065

REACTIONS (56)
  - Abdominal distension [Recovering/Resolving]
  - Lymphocyte count decreased [Unknown]
  - Sinusitis [Unknown]
  - Musculoskeletal pain [Recovered/Resolved]
  - Fibrin D dimer increased [Unknown]
  - Feeling hot [Unknown]
  - Localised infection [Unknown]
  - Chills [Recovered/Resolved]
  - Muscle spasms [Unknown]
  - Renal impairment [Unknown]
  - Glomerular filtration rate decreased [Unknown]
  - Blood pressure systolic increased [Unknown]
  - Hepatic enzyme increased [Recovering/Resolving]
  - Blood urea decreased [Unknown]
  - Blister [Recovering/Resolving]
  - Blood pressure systolic decreased [Unknown]
  - Diarrhoea [Recovering/Resolving]
  - Injection site mass [Recovered/Resolved]
  - Photopsia [Unknown]
  - Renal failure [Unknown]
  - Haematocrit decreased [Unknown]
  - Volvulus [Recovering/Resolving]
  - Blood pressure decreased [Unknown]
  - Platelet count decreased [Unknown]
  - Anal incontinence [Unknown]
  - Anaemia [Unknown]
  - Mass [Unknown]
  - Productive cough [Unknown]
  - Vitreous floaters [Unknown]
  - Joint swelling [Recovered/Resolved]
  - White blood cell count decreased [Unknown]
  - Nausea [Unknown]
  - Blood creatinine decreased [Unknown]
  - Heart rate irregular [Unknown]
  - Syncope [Recovering/Resolving]
  - Abdominal pain [Recovering/Resolving]
  - Retinal tear [Unknown]
  - Discomfort [Unknown]
  - Arthritis [Unknown]
  - Drug hypersensitivity [Unknown]
  - Gait disturbance [Recovered/Resolved]
  - Herpes zoster [Recovering/Resolving]
  - Haemoglobin decreased [Unknown]
  - Tenderness [Unknown]
  - Dizziness [Recovered/Resolved]
  - Body temperature decreased [Recovering/Resolving]
  - Injection site swelling [Recovered/Resolved]
  - Head injury [Recovering/Resolving]
  - Pain in extremity [Recovering/Resolving]
  - Arthralgia [Recovered/Resolved]
  - Burning sensation [Recovering/Resolving]
  - Hyperhidrosis [Unknown]
  - Cold sweat [Unknown]
  - Red blood cell count decreased [Unknown]
  - Sputum discoloured [Unknown]
  - Flatulence [Unknown]

NARRATIVE: CASE EVENT DATE: 2011
